FAERS Safety Report 23270129 (Version 2)
Quarter: 2024Q1

REPORT INFORMATION
  Report Type: Spontaneous
  Country: JP (occurrence: JP)
  Receive Date: 20231207
  Receipt Date: 20240109
  Transmission Date: 20240410
  Serious: Yes (Hospitalization, Other)
  Sender: FDA-Public Use
  Company Number: JP-OPELLA-2023OHG017964

PATIENT
  Age: 4 Decade
  Sex: Male
  Weight: 74 kg

DRUGS (2)
  1. XYZAL [Suspect]
     Active Substance: LEVOCETIRIZINE DIHYDROCHLORIDE
     Indication: Rhinitis allergic
     Route: 065
  2. FEXOFENADINE HYDROCHLORIDE\PSEUDOEPHEDRINE HYDROCHLORIDE [Concomitant]
     Active Substance: FEXOFENADINE HYDROCHLORIDE\PSEUDOEPHEDRINE HYDROCHLORIDE
     Indication: Rhinitis allergic
     Route: 065

REACTIONS (8)
  - Vanishing bile duct syndrome [Recovered/Resolved]
  - Jaundice [Recovered/Resolved]
  - Hepatocellular injury [Recovered/Resolved]
  - Cholangitis [Recovered/Resolved]
  - Biliary tract disorder [Recovered/Resolved]
  - Yellow skin [Recovered/Resolved]
  - Chromaturia [Recovered/Resolved]
  - Liver injury [Recovered/Resolved]
